FAERS Safety Report 16854105 (Version 1)
Quarter: 2019Q3

REPORT INFORMATION
  Report Type: Spontaneous
  Country: IT (occurrence: IT)
  Receive Date: 20190926
  Receipt Date: 20190926
  Transmission Date: 20191005
  Serious: Yes (Other)
  Sender: FDA-Public Use
  Company Number: IT-JAZZ-2019-IT-013111

PATIENT
  Age: 1 Year
  Sex: Female
  Weight: 11 kg

DRUGS (1)
  1. ERWINASE [Suspect]
     Active Substance: ASPARAGINASE ERWINIA CHRYSANTHEMI
     Indication: ACUTE LYMPHOCYTIC LEUKAEMIA
     Dosage: 9200 IU
     Route: 042
     Dates: start: 20190906, end: 20190906

REACTIONS (4)
  - Crying [Recovered/Resolved]
  - Face oedema [Recovered/Resolved]
  - Irritability [Recovered/Resolved]
  - Lip oedema [Recovered/Resolved]

NARRATIVE: CASE EVENT DATE: 20190906
